FAERS Safety Report 8378504-9 (Version None)
Quarter: 2012Q2

REPORT INFORMATION
  Report Type: 
  Country: None (occurrence: None)
  Receive Date: 20120522
  Receipt Date: 20120514
  Transmission Date: 20120825
  Serious: Yes (Other)
  Sender: FDA-Public Use
  Company Number: US-ABBOTT-12P-163-0935946-00

PATIENT
  Sex: Male
  Weight: 43.13 kg

DRUGS (2)
  1. ZYRTEC [Concomitant]
     Indication: SEASONAL ALLERGY
  2. LUPRON [Suspect]
     Indication: PRECOCIOUS PUBERTY
     Dates: start: 20111101

REACTIONS (7)
  - HEAD INJURY [None]
  - DECREASED APPETITE [None]
  - EXCORIATION [None]
  - ABDOMINAL PAIN UPPER [None]
  - FALL [None]
  - HYPERSOMNIA [None]
  - LOSS OF CONSCIOUSNESS [None]
